FAERS Safety Report 4951540-8 (Version None)
Quarter: 2006Q1

REPORT INFORMATION
  Report Type: 
  Country: None (occurrence: None)
  Receive Date: 20060317
  Receipt Date: 20060304
  Transmission Date: 20060701
  Serious: Yes (Other)
  Sender: FDA-Public Use
  Company Number: 2006034952

PATIENT
  Age: 15 Year
  Sex: Female
  Weight: 46 kg

DRUGS (11)
  1. ZYRTEC [Suspect]
     Indication: ILL-DEFINED DISORDER
     Dosage: 30 MG (1 D), ORAL
     Route: 048
     Dates: start: 20060304, end: 20060304
  2. CETIRIZINE HCL [Suspect]
     Indication: ILL-DEFINED DISORDER
     Dosage: 80 MG (1 D), ORAL
     Route: 048
     Dates: start: 20060304, end: 20060304
  3. DOXYCYCLINE [Suspect]
     Indication: ILL-DEFINED DISORDER
     Dosage: 500 MG (1 D), ORAL
     Route: 048
     Dates: start: 20060304, end: 20060304
  4. AMOXICILLIN [Suspect]
     Indication: ILL-DEFINED DISORDER
     Dosage: 5250 MG (1 D), ORAL
     Route: 048
     Dates: start: 20060304, end: 20060304
  5. IBUPROFEN [Suspect]
     Indication: ILL-DEFINED DISORDER
     Dosage: 2000 MG (1 D),  ORAL
     Route: 048
     Dates: start: 20060304, end: 20060304
  6. NAPROXEN [Suspect]
     Indication: ILL-DEFINED DISORDER
     Dosage: 1250 MG (1 D), ORAL
     Route: 048
     Dates: start: 20060304, end: 20060304
  7. AMBROXOL (AMBROXOL) [Concomitant]
  8. FERROUS GLUCONATE (FERROUS GLUCONATE) [Concomitant]
  9. ACETAMINOPHEN [Concomitant]
  10. SINUPRET (ASCORBIC ACID, GENTIAN, PRIMULA FLOWERS, RUMICIS ASETOSA, SA [Concomitant]
  11. FISH OIL (FISH OIL) [Concomitant]

REACTIONS (3)
  - DIZZINESS [None]
  - MULTIPLE DRUG OVERDOSE INTENTIONAL [None]
  - SUICIDE ATTEMPT [None]
